FAERS Safety Report 17751586 (Version 2)
Quarter: 2020Q3

REPORT INFORMATION
  Report Type: Other
  Country: DE (occurrence: DE)
  Receive Date: 20200506
  Receipt Date: 20200828
  Transmission Date: 20201102
  Serious: Yes (Other)
  Sender: FDA-Public Use
  Company Number: DE-ROCHE-2257738

PATIENT
  Sex: Female

DRUGS (13)
  1. ROACTEMRA [Suspect]
     Active Substance: TOCILIZUMAB
     Route: 058
     Dates: start: 20190907, end: 202001
  2. ROACTEMRA [Suspect]
     Active Substance: TOCILIZUMAB
     Dosage: AS A TRIAL IN CONSULTATION WITH HER RHEUMATOLOGIST
     Route: 058
     Dates: start: 202006, end: 202007
  3. CANDESARTAN. [Concomitant]
     Active Substance: CANDESARTAN
  4. ROACTEMRA [Suspect]
     Active Substance: TOCILIZUMAB
     Route: 058
     Dates: start: 20181005, end: 201909
  5. RAMIPRIL. [Concomitant]
     Active Substance: RAMIPRIL
  6. ROACTEMRA [Suspect]
     Active Substance: TOCILIZUMAB
     Indication: GIANT CELL ARTERITIS
     Route: 058
     Dates: start: 20180907
  7. ROACTEMRA [Suspect]
     Active Substance: TOCILIZUMAB
     Route: 058
     Dates: start: 2020
  8. ASPIRIN. [Concomitant]
     Active Substance: ASPIRIN
  9. ATORVASTATIN [Concomitant]
     Active Substance: ATORVASTATIN
  10. ROACTEMRA [Suspect]
     Active Substance: TOCILIZUMAB
     Route: 058
  11. DEKRISTOL [Concomitant]
     Active Substance: CHOLECALCIFEROL
     Dosage: 1000 MG
  12. ROACTEMRA [Suspect]
     Active Substance: TOCILIZUMAB
     Route: 058
     Dates: start: 20191121, end: 20191219
  13. CORTISONE [Concomitant]
     Active Substance: CORTISONE
     Dosage: BEING TAPERED

REACTIONS (9)
  - Dyspnoea [Recovered/Resolved]
  - Infection [Unknown]
  - Headache [Recovered/Resolved]
  - Angina pectoris [Recovered/Resolved]
  - Fluid retention [Recovered/Resolved]
  - Pain [Recovered/Resolved]
  - Pharyngeal inflammation [Recovered/Resolved]
  - Leukopenia [Recovered/Resolved]
  - Stress [Recovered/Resolved]

NARRATIVE: CASE EVENT DATE: 201811
